FAERS Safety Report 11402681 (Version 1)
Quarter: 2015Q3

REPORT INFORMATION
  Report Type: Spontaneous
  Country: US (occurrence: US)
  Receive Date: 20150821
  Receipt Date: 20150821
  Transmission Date: 20151125
  Serious: No
  Sender: FDA-Public Use
  Company Number: US-ROCHE-1259098

PATIENT
  Sex: Male

DRUGS (4)
  1. PEGASYS [Suspect]
     Active Substance: PEGINTERFERON ALFA-2A
     Indication: CHRONIC HEPATITIS C
     Route: 058
     Dates: start: 20130524
  2. TELAPREVIR [Suspect]
     Active Substance: TELAPREVIR
     Indication: CHRONIC HEPATITIS C
     Route: 065
     Dates: start: 20130524, end: 20130816
  3. RIBAVIRIN. [Suspect]
     Active Substance: RIBAVIRIN
     Route: 048
     Dates: start: 20130906
  4. RIBAVIRIN. [Suspect]
     Active Substance: RIBAVIRIN
     Indication: CHRONIC HEPATITIS C
     Route: 048
     Dates: start: 20130524

REACTIONS (14)
  - Insomnia [Unknown]
  - Visual impairment [Unknown]
  - Dyspnoea [Unknown]
  - Eye haemorrhage [Unknown]
  - Diarrhoea [Recovered/Resolved]
  - Anorectal discomfort [Recovered/Resolved]
  - Anaemia [Unknown]
  - Fatigue [Unknown]
  - Irritability [Unknown]
  - Hyperhidrosis [Recovered/Resolved]
  - Anger [Unknown]
  - Pruritus [Unknown]
  - Chills [Recovered/Resolved]
  - Sluggishness [Unknown]
